FAERS Safety Report 11616621 (Version 3)
Quarter: 2016Q4

REPORT INFORMATION
  Report Type: Report from Study
  Country: FR (occurrence: FR)
  Receive Date: 20151009
  Receipt Date: 20161223
  Transmission Date: 20170206
  Serious: Yes (Life-Threatening, Hospitalization, Other)
  Sender: FDA-Public Use
  Company Number: FR-SA-2015SA153793

PATIENT
  Sex: Female

DRUGS (27)
  1. OXALIPLATIN. [Suspect]
     Active Substance: OXALIPLATIN
     Indication: COLORECTAL CANCER METASTATIC
     Route: 042
     Dates: start: 20150527, end: 20150527
  2. BEVACIZUMAB [Suspect]
     Active Substance: BEVACIZUMAB
     Indication: COLORECTAL CANCER METASTATIC
     Dosage: FORM: INFUSION
     Route: 065
     Dates: start: 20150708, end: 20150708
  3. TRAMADOL. [Concomitant]
     Active Substance: TRAMADOL
     Indication: HEPATIC PAIN
     Dates: start: 20150529, end: 20150530
  4. BEVACIZUMAB [Suspect]
     Active Substance: BEVACIZUMAB
     Indication: COLORECTAL CANCER METASTATIC
     Dosage: FORM: INFUSION
     Route: 042
     Dates: start: 20150527, end: 20150527
  5. PREDNISOLONE. [Concomitant]
     Active Substance: PREDNISOLONE
     Indication: PREMEDICATION
     Dates: start: 20150527, end: 20150708
  6. PREDNISOLONE. [Concomitant]
     Active Substance: PREDNISOLONE
     Indication: PROPHYLAXIS
     Dates: start: 20150527, end: 20150708
  7. DIFFU K [Concomitant]
     Active Substance: POTASSIUM CHLORIDE
     Indication: HYPOKALAEMIA
     Dates: start: 20150715, end: 20150728
  8. FOLINIC ACID [Suspect]
     Active Substance: LEUCOVORIN
     Indication: COLORECTAL CANCER METASTATIC
     Route: 065
     Dates: start: 20150708, end: 20150708
  9. OXALIPLATIN. [Suspect]
     Active Substance: OXALIPLATIN
     Indication: COLORECTAL CANCER METASTATIC
     Route: 042
     Dates: start: 20150708, end: 20150708
  10. FLUOROURACIL. [Suspect]
     Active Substance: FLUOROURACIL
     Dosage: BOLUS 600 MG?INFUSION 3550 MG
     Route: 042
     Dates: start: 20150708, end: 20150708
  11. FLUOROURACIL. [Suspect]
     Active Substance: FLUOROURACIL
     Route: 042
     Dates: start: 20150710, end: 20150710
  12. CETIRIZINE [Concomitant]
     Active Substance: CETIRIZINE HYDROCHLORIDE
     Dates: start: 2000
  13. LEVOFOLINATE [Concomitant]
     Active Substance: LEVOLEUCOVORIN CALCIUM
     Indication: COLORECTAL CANCER METASTATIC
     Dosage: 1 IN 2 WEEK
     Route: 042
     Dates: start: 20150527
  14. FLUOROURACIL. [Suspect]
     Active Substance: FLUOROURACIL
     Route: 042
     Dates: start: 20150527, end: 20150527
  15. EMEND [Concomitant]
     Active Substance: APREPITANT
     Indication: PROPHYLAXIS
     Dates: start: 20150527, end: 20150708
  16. TITANOREINE [Concomitant]
     Active Substance: CARRAGEENAN\TITANIUM\ZINC
     Indication: HAEMORRHOIDS
     Dosage: DAILY DOSE: 6 (UNITS NOT PROVIDED)
     Dates: start: 20150615, end: 20150617
  17. FOLINIC ACID [Suspect]
     Active Substance: LEUCOVORIN
     Indication: COLORECTAL CANCER METASTATIC
     Route: 042
     Dates: start: 20150527, end: 20150527
  18. EMEND [Concomitant]
     Active Substance: APREPITANT
     Indication: PREMEDICATION
     Dates: start: 20150527, end: 20150708
  19. ONDANSETRON [Concomitant]
     Active Substance: ONDANSETRON
     Indication: PREMEDICATION
     Dates: start: 20150527, end: 20150708
  20. MOPRAL [Concomitant]
     Active Substance: OMEPRAZOLE SODIUM
     Indication: LACTOSE INTOLERANCE
     Dates: start: 20150624, end: 20150719
  21. OXYNORMORO [Concomitant]
     Active Substance: OXYCODONE
     Indication: HEPATIC PAIN
     Dates: start: 20150502, end: 20150503
  22. FORADIL [Concomitant]
     Active Substance: FORMOTEROL FUMARATE
     Dates: start: 2013
  23. MIFLONIL [Concomitant]
     Active Substance: BUDESONIDE
     Dates: start: 2013
  24. MONTELUKAST [Concomitant]
     Active Substance: MONTELUKAST SODIUM
     Dates: start: 2013
  25. ONDANSETRON [Concomitant]
     Active Substance: ONDANSETRON
     Indication: PROPHYLAXIS
     Dates: start: 20150527, end: 20150708
  26. AMOXICILLIN. [Concomitant]
     Active Substance: AMOXICILLIN
     Indication: BRONCHITIS
     Dates: start: 20150715, end: 20150728
  27. LEVOFOLINATE [Concomitant]
     Active Substance: LEVOLEUCOVORIN CALCIUM
     Indication: COLORECTAL CANCER METASTATIC
     Dates: start: 20150708

REACTIONS (2)
  - Nasal dryness [Recovering/Resolving]
  - Arterial thrombosis [Recovered/Resolved]

NARRATIVE: CASE EVENT DATE: 201507
